FAERS Safety Report 25743741 (Version 1)
Quarter: 2025Q3

REPORT INFORMATION
  Report Type: Spontaneous
  Country: US (occurrence: US)
  Receive Date: 20250831
  Receipt Date: 20250831
  Transmission Date: 20251021
  Serious: No
  Sender: CSL BEHRING
  Company Number: US-BEH-2025217312

PATIENT
  Sex: Female

DRUGS (3)
  1. HIZENTRA [Suspect]
     Active Substance: HUMAN IMMUNOGLOBULIN G
     Indication: Urticaria chronic
     Dosage: 10 G, QOW(HAS BEEN ON HIZENTRA FOR ^YEARS^)
     Route: 065
  2. HIZENTRA [Suspect]
     Active Substance: HUMAN IMMUNOGLOBULIN G
     Dosage: 4 G, QOW(HAS BEEN ON HIZENTRA FOR ^YEARS^)
     Route: 065
  3. HIZENTRA [Suspect]
     Active Substance: HUMAN IMMUNOGLOBULIN G
     Dosage: 4 G, QOW(HAS BEEN ON HIZENTRA FOR ^YEARS^)
     Route: 065

REACTIONS (2)
  - Urticaria [Unknown]
  - Product use in unapproved indication [Unknown]
